FAERS Safety Report 24634626 (Version 2)
Quarter: 2024Q4

REPORT INFORMATION
  Report Type: Spontaneous
  Country: US (occurrence: US)
  Receive Date: 20241119
  Receipt Date: 20241120
  Transmission Date: 20250115
  Serious: No
  Sender: BIOVITRUM
  Company Number: US-BIOVITRUM-2024-US-014770

PATIENT
  Age: 77 Year
  Sex: Female

DRUGS (1)
  1. VONJO [Suspect]
     Active Substance: PACRITINIB
     Indication: Myelofibrosis
     Dosage: TWICE DAILY
     Route: 048

REACTIONS (2)
  - Drug ineffective [Unknown]
  - Off label use [Recovered/Resolved]
